FAERS Safety Report 7866718-3 (Version None)
Quarter: 2011Q4

REPORT INFORMATION
  Report Type: 
  Country: None (occurrence: None)
  Receive Date: 20111028
  Receipt Date: 20110805
  Transmission Date: 20120403
  Serious: No
  Sender: FDA-Public Use
  Company Number: US-GLAXOSMITHKLINE-A0939922A

PATIENT
  Age: 89 Year
  Sex: Female

DRUGS (11)
  1. AMLODIPINE [Concomitant]
  2. ADVAIR DISKUS 100/50 [Suspect]
     Indication: ASTHMA
     Dosage: 1PUFF TWICE PER DAY
     Route: 055
     Dates: start: 20080101
  3. PEPCID [Concomitant]
  4. SPIRIVA [Concomitant]
  5. LUMIGAN [Concomitant]
  6. COMBIVENT [Concomitant]
  7. LOVASTATIN [Concomitant]
  8. FERROUS SULFATE TAB [Concomitant]
  9. ACTONEL [Concomitant]
  10. METHIMAZOLE [Concomitant]
  11. NORVASC [Concomitant]

REACTIONS (2)
  - DYSPHONIA [None]
  - THROAT IRRITATION [None]
